FAERS Safety Report 14885654 (Version 3)
Quarter: 2018Q3

REPORT INFORMATION
  Report Type: Spontaneous
  Country: US (occurrence: US)
  Receive Date: 20180511
  Receipt Date: 20180709
  Transmission Date: 20181010
  Serious: No
  Sender: FDA-Public Use
  Company Number: US-BIOMARINAP-US-2018-118084

PATIENT
  Age: 2 Month
  Sex: Male

DRUGS (1)
  1. ALDURAZYME [Suspect]
     Active Substance: LARONIDASE
     Indication: MUCOPOLYSACCHARIDOSIS I
     Dosage: 5.80 UNITS, QW
     Route: 041
     Dates: start: 20180323

REACTIONS (3)
  - Pyrexia [Recovering/Resolving]
  - Incisional drainage [Unknown]
  - Incision site rash [Unknown]

NARRATIVE: CASE EVENT DATE: 20180420
